FAERS Safety Report 25166671 (Version 4)
Quarter: 2025Q3

REPORT INFORMATION
  Report Type: Report from Study
  Country: US (occurrence: US)
  Receive Date: 20250407
  Receipt Date: 20250714
  Transmission Date: 20251021
  Serious: Yes (Other)
  Sender: BAYER HEALTHCARE PHARMACEUTICALS INC.
  Company Number: US-BAYER-2025A041991

PATIENT
  Age: 73 Year
  Sex: Male

DRUGS (3)
  1. ADEMPAS [Suspect]
     Active Substance: RIOCIGUAT
     Indication: Pulmonary arterial hypertension
  2. ADEMPAS [Suspect]
     Active Substance: RIOCIGUAT
     Indication: Pulmonary arterial hypertension
     Route: 048
     Dates: start: 202503
  3. ADEMPAS [Suspect]
     Active Substance: RIOCIGUAT
     Indication: Pulmonary arterial hypertension
     Dosage: 1.5 MG, TID
     Route: 048
     Dates: start: 202504

REACTIONS (20)
  - Heart rate decreased [None]
  - Heart rate decreased [None]
  - Surgery [None]
  - Pulmonary thrombosis [None]
  - Bradycardia [None]
  - Dizziness [Not Recovered/Not Resolved]
  - Headache [Not Recovered/Not Resolved]
  - Fatigue [Not Recovered/Not Resolved]
  - Increased dose administered [None]
  - Intentional product use issue [None]
  - Oedema [Recovered/Resolved]
  - Peripheral swelling [None]
  - Dyspnoea [None]
  - Fluid retention [None]
  - Product dose omission issue [None]
  - Memory impairment [None]
  - Oedema peripheral [None]
  - Decreased activity [None]
  - Gait inability [None]
  - Insomnia [None]

NARRATIVE: CASE EVENT DATE: 20250101
